FAERS Safety Report 5606112-9 (Version None)
Quarter: 2008Q1

REPORT INFORMATION
  Report Type: 
  Country: None (occurrence: None)
  Receive Date: 20080123
  Receipt Date: 20080108
  Transmission Date: 20080703
  Serious: Yes (Other)
  Sender: FDA-Public Use
  Company Number: 100#08#2008-00165

PATIENT
  Age: 60 Year
  Sex: Female

DRUGS (2)
  1. LEFLUNOMIDE [Suspect]
     Indication: MUSCULOSKELETAL PAIN
     Dosage: 20 MG/DAY
  2. METHOTREXATE [Suspect]
     Indication: DRUG USE FOR UNKNOWN INDICATION

REACTIONS (2)
  - LIVER FUNCTION TEST ABNORMAL [None]
  - PERIPHERAL SENSORIMOTOR NEUROPATHY [None]
